FAERS Safety Report 5838413-3 (Version None)
Quarter: 2008Q3

REPORT INFORMATION
  Report Type: 
  Country: None (occurrence: None)
  Receive Date: 20080808
  Receipt Date: 20080728
  Transmission Date: 20090109
  Serious: Yes (Other)
  Sender: FDA-Public Use
  Company Number: PHHY2008JP14411

PATIENT
  Sex: Male
  Weight: 2.06 kg

DRUGS (4)
  1. CYCLOSPORINE [Suspect]
     Route: 064
  2. AZATHIOPRINE [Concomitant]
     Indication: RENAL TRANSPLANT
     Route: 064
  3. MYCOPHENOLATE MOFETIL [Concomitant]
     Indication: RENAL TRANSPLANT
     Dosage: UNK
     Route: 064
     Dates: end: 20040101
  4. PREDNISOLONE [Concomitant]
     Indication: RENAL TRANSPLANT
     Dosage: UNK
     Route: 064

REACTIONS (12)
  - CEREBRAL VENTRICLE DILATATION [None]
  - CONGENITAL CYTOMEGALOVIRUS INFECTION [None]
  - CYTOMEGALOVIRUS ANTIBODY POSITIVE [None]
  - CYTOMEGALOVIRUS ANTIGEN POSITIVE [None]
  - DRUG EXPOSURE DURING PREGNANCY [None]
  - HEPATIC FUNCTION ABNORMAL [None]
  - HEPATOSPLENOMEGALY NEONATAL [None]
  - HYDROCEPHALUS [None]
  - PREMATURE BABY [None]
  - RASH GENERALISED [None]
  - SMALL FOR DATES BABY [None]
  - THROMBOCYTOPENIA [None]
